FAERS Safety Report 5953143-5 (Version None)
Quarter: 2008Q4

REPORT INFORMATION
  Report Type: 
  Country: None (occurrence: None)
  Receive Date: 20081031
  Receipt Date: 20080721
  Transmission Date: 20090506
  Serious: Yes (Hospitalization)
  Sender: FDA-Public Use
  Company Number: US024184

PATIENT
  Age: 40 Year
  Sex: Male

DRUGS (1)
  1. PROVIGIL [Suspect]
     Indication: CIRCADIAN RHYTHM SLEEP DISORDER
     Dosage: 200 MG QD ORAL
     Route: 048

REACTIONS (1)
  - BLOOD PRESSURE INADEQUATELY CONTROLLED [None]
